FAERS Safety Report 22299370 (Version 1)
Quarter: 2023Q2

REPORT INFORMATION
  Report Type: Spontaneous
  Country: US (occurrence: None)
  Receive Date: 20230508
  Receipt Date: 20230508
  Transmission Date: 20230722
  Serious: No
  Sender: FDA-Public Use
  Company Number: None

PATIENT
  Age: 49 Year
  Sex: Female
  Weight: 60.75 kg

DRUGS (2)
  1. DEXTROAMPHET SACCHARAT, AMPHET ASPARTATE, DEXTROAMPHET SULFATE AND AMP [Suspect]
     Active Substance: AMPHETAMINE ASPARTATE\AMPHETAMINE ASPARTATE MONOHYDRATE\AMPHETAMINE SULFATE\DEXTROAMPHETAMINE SACCHA
     Indication: Attention deficit hyperactivity disorder
     Dates: start: 20070701
  2. CYMBALTA [Concomitant]
     Active Substance: DULOXETINE HYDROCHLORIDE

REACTIONS (11)
  - Quality of life decreased [None]
  - Product availability issue [None]
  - Crying [None]
  - Tachyphrenia [None]
  - Anxiety [None]
  - Autophobia [None]
  - Loss of personal independence in daily activities [None]
  - Impulsive behaviour [None]
  - Frustration tolerance decreased [None]
  - Hypersomnia [None]
  - Feeling abnormal [None]

NARRATIVE: CASE EVENT DATE: 20221001
